FAERS Safety Report 8592365-4 (Version None)
Quarter: 2012Q3

REPORT INFORMATION
  Report Type: 
  Country: None (occurrence: None)
  Receive Date: 20120814
  Receipt Date: 20120806
  Transmission Date: 20120928
  Serious: Yes (Hospitalization)
  Sender: FDA-Public Use
  Company Number: BR-B.I. PHARMACEUTICALS,INC./RIDGEFIELD-2012-BR-00803BR

PATIENT
  Sex: Male

DRUGS (2)
  1. PRADAXA [Suspect]
     Indication: CARDIAC DISORDER
     Dosage: 220 MG
     Route: 048
     Dates: start: 20120101, end: 20120709
  2. UNKNOWN DRUG [Concomitant]
     Indication: SPINAL DISORDER

REACTIONS (5)
  - ABDOMINAL INFECTION [None]
  - INTUSSUSCEPTION [None]
  - PLEURAL EFFUSION [None]
  - CHOLECYSTITIS ACUTE [None]
  - PNEUMONIA [None]
